FAERS Safety Report 8065449-7 (Version None)
Quarter: 2012Q1

REPORT INFORMATION
  Report Type: 
  Country: None (occurrence: None)
  Receive Date: 20120117
  Receipt Date: 20120103
  Transmission Date: 20120608
  Serious: Yes (Hospitalization)
  Sender: FDA-Public Use
  Company Number: 7104374

PATIENT
  Age: 81 Year
  Sex: Male

DRUGS (11)
  1. INSULATARD NPH HUMAN [Suspect]
     Indication: PRODUCT USED FOR UNKNOWN INDICATION
     Dosage: 40 IU (40 IU, 1 IN 1 D) FOR A LONG TIME
     Route: 058
  2. ACTRAPID (INSULIN) (INSULIN) [Suspect]
     Indication: PRODUCT USED FOR UNKNOWN INDICATION
     Dosage: 10 IU (5 IU, 2 IN 1 D) FOR A LONG TIME
     Route: 058
  3. LEVOTHYROXINE SODIUM [Suspect]
     Indication: PRODUCT USED FOR UNKNOWN INDICATION
     Dosage: 50 MCG (50 MCG, 1 IN 1 D) ORAL
     Route: 048
  4. REPAGLINIDE [Suspect]
     Dosage: 6 MG (2 MG, 3 IN 1 D) FOR A LONG TIME
     Route: 048
  5. EFFEXOR [Suspect]
     Indication: PRODUCT USED FOR UNKNOWN INDICATION
     Dosage: 75 MG (37.5 MG, 2 IN 1 D) FOR A LONG TIME
     Route: 048
  6. RAMIPRIL [Suspect]
     Indication: PRODUCT USED FOR UNKNOWN INDICATION
     Dosage: 1.25 MG (1.25 MG, 1 IN 1 D) 2.5 MG (2.5 MG, 1 IN 1 D) FOR A LONG TIME
     Route: 048
  7. FUROSEMIDE [Suspect]
     Indication: PRODUCT USED FOR UNKNOWN INDICATION
     Dosage: 80 MG (40 MG, 2 IN 1 D) FOR A LONG TIME
     Route: 048
  8. PREVISCAN (FLUINDIONE) (20 MG, TABLET) (FLUINDIONE) [Suspect]
     Indication: PRODUCT USED FOR UNKNOWN INDICATION
     Dosage: 0.75 DF (0.75 DF, 1 IN 1 D) ORAL
     Route: 048
  9. VADILEX (IFENPRODIL TARTRATE) (20 MG, TABLET) (IFENPRODIL) [Suspect]
     Indication: PRODUCT USED FOR UNKNOWN INDICATION
     Dosage: 40 MG (20 MG, 2 IN 1 D)
     Route: 048
  10. AMIODARONE HCL [Suspect]
     Indication: PRODUCT USED FOR UNKNOWN INDICATION
     Dosage: 0.5 DF (DF, 1 IN 1 D) FOR A LONG TIME
     Route: 048
  11. LANSOPRAZOLE [Suspect]
     Indication: PRODUCT USED FOR UNKNOWN INDICATION
     Dosage: 1 DF (1 DF, 1 IN 1 D) FOR A LONG TIME
     Route: 048

REACTIONS (2)
  - DERMATITIS EXFOLIATIVE [None]
  - STASIS DERMATITIS [None]
